FAERS Safety Report 18095403 (Version 1)
Quarter: 2020Q3

REPORT INFORMATION
  Report Type: Spontaneous
  Country: DE (occurrence: DE)
  Receive Date: 20200731
  Receipt Date: 20200731
  Transmission Date: 20201103
  Serious: Yes (Other)
  Sender: FDA-Public Use
  Company Number: DE-DRREDDYS-GER/GER/20/0125488

PATIENT
  Age: 35 Year
  Sex: Female
  Weight: 70 kg

DRUGS (6)
  1. PREGABALIN BETA 200 MG HARTKAPSELN [Suspect]
     Active Substance: PREGABALIN
     Indication: PRODUCT USED FOR UNKNOWN INDICATION
     Route: 048
  2. PREGABALIN BETA 200 MG HARTKAPSELN [Suspect]
     Active Substance: PREGABALIN
     Route: 048
     Dates: start: 20200725, end: 20200725
  3. RIVOTRIL [Suspect]
     Active Substance: CLONAZEPAM
     Route: 048
     Dates: start: 20200725
  4. RIVOTRIL [Suspect]
     Active Substance: CLONAZEPAM
     Indication: PRODUCT USED FOR UNKNOWN INDICATION
     Route: 048
  5. CHLORALHYDRAT 500MG DESITIN WEICHKAPSELN [Suspect]
     Active Substance: CHLORAL HYDRATE
     Route: 048
     Dates: start: 20200725, end: 20200725
  6. CHLORALHYDRAT 500MG DESITIN WEICHKAPSELN [Suspect]
     Active Substance: CHLORAL HYDRATE
     Indication: PRODUCT USED FOR UNKNOWN INDICATION
     Route: 048

REACTIONS (3)
  - Intentional overdose [Unknown]
  - Suicide attempt [Unknown]
  - Coma [Unknown]

NARRATIVE: CASE EVENT DATE: 20200725
